FAERS Safety Report 23425014 (Version 2)
Quarter: 2024Q1

REPORT INFORMATION
  Report Type: Spontaneous
  Country: JP (occurrence: JP)
  Receive Date: 20240121
  Receipt Date: 20240205
  Transmission Date: 20240410
  Serious: Yes (Death)
  Sender: FDA-Public Use
  Company Number: JP-KISSEI-TV20240024_P_1

PATIENT
  Age: 79 Year
  Sex: Female

DRUGS (1)
  1. TAVNEOS [Suspect]
     Active Substance: AVACOPAN
     Indication: Microscopic polyangiitis
     Dosage: UNK
     Route: 048
     Dates: start: 202309, end: 20240102

REACTIONS (2)
  - Infection [Fatal]
  - Cardiac failure [Fatal]
